FAERS Safety Report 19777067 (Version 1)
Quarter: 2021Q3

REPORT INFORMATION
  Report Type: Spontaneous
  Country: US (occurrence: US)
  Receive Date: 20210902
  Receipt Date: 20210902
  Transmission Date: 20211014
  Serious: Yes (Life-Threatening, Hospitalization, Other)
  Sender: FDA-Public Use
  Company Number: US-ORGANON-O2108USA001928

PATIENT
  Age: 57 Year
  Sex: Female

DRUGS (4)
  1. LOSARTAN. [Suspect]
     Active Substance: LOSARTAN
     Indication: HYPERTENSION
     Dosage: UNK
  2. LOSARTAN. [Suspect]
     Active Substance: LOSARTAN
     Dosage: UNK
  3. COZAAR [Suspect]
     Active Substance: LOSARTAN POTASSIUM
     Indication: HYPERTENSION
     Dosage: UNK
     Route: 048
  4. COZAAR [Suspect]
     Active Substance: LOSARTAN POTASSIUM
     Dosage: 100 MILLIGRAM, ONCE PER DAY
     Route: 048
     Dates: start: 2020

REACTIONS (12)
  - Eye disorder [Unknown]
  - Chest pain [Unknown]
  - Product quality issue [Unknown]
  - Atrioventricular block [Recovering/Resolving]
  - Neoplasm malignant [Unknown]
  - Drug ineffective [Unknown]
  - Hyperhidrosis [Unknown]
  - Chest discomfort [Unknown]
  - Transient ischaemic attack [Unknown]
  - Nasopharyngitis [Unknown]
  - Blood pressure increased [Not Recovered/Not Resolved]
  - Dizziness [Unknown]

NARRATIVE: CASE EVENT DATE: 2020
